FAERS Safety Report 15449907 (Version 3)
Quarter: 2020Q2

REPORT INFORMATION
  Report Type: Spontaneous
  Country: CA (occurrence: CA)
  Receive Date: 20181001
  Receipt Date: 20200519
  Transmission Date: 20200713
  Serious: Yes (Hospitalization, Other)
  Sender: FDA-Public Use
  Company Number: CA-ABBVIE-18K-028-2449763-00

PATIENT
  Sex: Female
  Weight: 51 kg

DRUGS (13)
  1. MYFORTIC [Suspect]
     Active Substance: MYCOPHENOLATE SODIUM
     Indication: PRODUCT USED FOR UNKNOWN INDICATION
     Route: 065
  2. PREDNISONE. [Suspect]
     Active Substance: PREDNISONE
     Indication: PRODUCT USED FOR UNKNOWN INDICATION
     Route: 065
  3. INFLECTRA [Suspect]
     Active Substance: INFLIXIMAB-DYYB
     Dosage: 5 MG/KG, AT 0, 2, 6 WEEKS THEN EVERY 8 WEEKS
     Route: 042
     Dates: start: 20190122, end: 2019
  4. HUMIRA [Suspect]
     Active Substance: ADALIMUMAB
     Indication: PRODUCT USED FOR UNKNOWN INDICATION
     Route: 058
     Dates: start: 2011, end: 201804
  5. METHOTREXATE. [Suspect]
     Active Substance: METHOTREXATE
     Indication: PRODUCT USED FOR UNKNOWN INDICATION
     Route: 065
     Dates: start: 2010, end: 2011
  6. INFLECTRA [Suspect]
     Active Substance: INFLIXIMAB-DYYB
     Dosage: 5 MG/KG, AT 0, 2, 6 WEEKS THEN EVERY 8 WEEKS
     Route: 042
     Dates: start: 20190319
  7. STELARA [Suspect]
     Active Substance: USTEKINUMAB
     Indication: PRODUCT USED FOR UNKNOWN INDICATION
     Route: 065
  8. INFLECTRA [Suspect]
     Active Substance: INFLIXIMAB-DYYB
     Indication: BEHCET^S SYNDROME
     Route: 042
     Dates: start: 20181013, end: 201810
  9. ACTEMRA [Suspect]
     Active Substance: TOCILIZUMAB
     Indication: PRODUCT USED FOR UNKNOWN INDICATION
     Route: 065
  10. IMURAN [Suspect]
     Active Substance: AZATHIOPRINE
     Indication: PRODUCT USED FOR UNKNOWN INDICATION
     Route: 065
  11. INFLECTRA [Suspect]
     Active Substance: INFLIXIMAB-DYYB
     Dosage: 5 MG/KG, AT 0, 2, 6 WEEKS THEN EVERY 8 WEEKS
     Route: 042
     Dates: start: 20181127
  12. INFLECTRA [Suspect]
     Active Substance: INFLIXIMAB-DYYB
     Dosage: 5 MG/KG, AT 0, 2, 6 WEEKS THEN EVERY 8 WEEKS
     Route: 042
     Dates: start: 20181018, end: 2018
  13. INFLECTRA [Suspect]
     Active Substance: INFLIXIMAB-DYYB
     Route: 042

REACTIONS (25)
  - Toxic skin eruption [Unknown]
  - Rash [Recovered/Resolved]
  - Drug ineffective [Unknown]
  - Induration [Unknown]
  - Visual impairment [Unknown]
  - Inflammation [Unknown]
  - Lyme disease [Not Recovered/Not Resolved]
  - Genital infection [Unknown]
  - Mononeuritis [Unknown]
  - Adverse drug reaction [Unknown]
  - Urticaria [Recovering/Resolving]
  - Unevaluable event [Unknown]
  - Mouth ulceration [Recovering/Resolving]
  - C-reactive protein increased [Unknown]
  - Headache [Recovered/Resolved]
  - Chorioretinitis [Recovering/Resolving]
  - Condition aggravated [Unknown]
  - Hypertension [Not Recovered/Not Resolved]
  - Loss of personal independence in daily activities [Unknown]
  - Oral infection [Unknown]
  - Off label use [Unknown]
  - Fatigue [Recovered/Resolved]
  - Drug intolerance [Unknown]
  - Adverse drug reaction [Unknown]
  - Retinal vasculitis [Unknown]

NARRATIVE: CASE EVENT DATE: 2012
